FAERS Safety Report 16769223 (Version 1)
Quarter: 2019Q3

REPORT INFORMATION
  Report Type: Report from Study
  Country: AU (occurrence: AU)
  Receive Date: 20190903
  Receipt Date: 20190903
  Transmission Date: 20191005
  Serious: Yes (Hospitalization)
  Sender: FDA-Public Use
  Company Number: AU-TEVA-2019-AU-1102310

PATIENT

DRUGS (1)
  1. QUETIAPINE. [Suspect]
     Active Substance: QUETIAPINE
     Dosage: EXTENDED RELEASE TABLETS
     Route: 048

REACTIONS (3)
  - Hypotension [Unknown]
  - Toxicity to various agents [Unknown]
  - Intentional overdose [Unknown]
